FAERS Safety Report 5365378-3 (Version None)
Quarter: 2007Q2

REPORT INFORMATION
  Report Type: 
  Country: None (occurrence: None)
  Receive Date: 20070530
  Receipt Date: 20070115
  Transmission Date: 20071010
  Serious: No
  Sender: FDA-Public Use
  Company Number: 2007PV028440

PATIENT
  Age: 37 Year
  Sex: Female

DRUGS (7)
  1. BYETTA [Suspect]
     Indication: DIABETES MELLITUS NON-INSULIN-DEPENDENT
     Dosage: 5 MCG;QD;SC
     Route: 058
     Dates: start: 20070113
  2. GLIMEPIRIDE [Concomitant]
  3. AVANDIA [Concomitant]
  4. METFORMIN HCL [Concomitant]
  5. CINNAMIN [Concomitant]
  6. YAMISIL [Concomitant]
  7. BENAZEPRIL HYDROCHLORIDE [Concomitant]

REACTIONS (3)
  - HEADACHE [None]
  - INCREASED APPETITE [None]
  - INJECTION SITE PAIN [None]
